FAERS Safety Report 8616153-5 (Version None)
Quarter: 2012Q3

REPORT INFORMATION
  Report Type: 
  Country: None (occurrence: None)
  Receive Date: 20120823
  Receipt Date: 20120814
  Transmission Date: 20120928
  Serious: Yes (Other)
  Sender: FDA-Public Use
  Company Number: US-ASTRAZENECA-2012SE36729

PATIENT
  Age: 61 Year
  Sex: Female

DRUGS (2)
  1. XANAX [Concomitant]
     Indication: SLEEP DISORDER
     Dosage: FOUR TIMES A DAY AS NEEDED
     Route: 048
  2. PULMICORT [Suspect]
     Dosage: 1 MG/2 ML 2 TIMES A DAY
     Route: 055
     Dates: start: 20120601

REACTIONS (7)
  - UPPER LIMB FRACTURE [None]
  - FALL [None]
  - DRUG DOSE OMISSION [None]
  - DYSPNOEA [None]
  - CERVICAL VERTEBRAL FRACTURE [None]
  - MALAISE [None]
  - OFF LABEL USE [None]
